FAERS Safety Report 6770029-7 (Version None)
Quarter: 2010Q2

REPORT INFORMATION
  Report Type: 
  Country: None (occurrence: None)
  Receive Date: 20100615
  Receipt Date: 20100607
  Transmission Date: 20101027
  Serious: Yes (Other)
  Sender: FDA-Public Use
  Company Number: US-JNJFOC-20100604226

PATIENT
  Sex: Female

DRUGS (3)
  1. IMODIUM A-D [Suspect]
     Route: 065
  2. IMODIUM A-D [Suspect]
     Indication: ILL-DEFINED DISORDER
     Route: 065
  3. NEURONTIN [Suspect]
     Indication: ILL-DEFINED DISORDER
     Route: 048

REACTIONS (1)
  - DIARRHOEA [None]
